FAERS Safety Report 7761320-6 (Version None)
Quarter: 2011Q3

REPORT INFORMATION
  Report Type: 
  Country: None (occurrence: None)
  Receive Date: 20110920
  Receipt Date: 20110915
  Transmission Date: 20111222
  Serious: No
  Sender: FDA-Public Use
  Company Number: US-PFIZER INC-2011219309

PATIENT
  Sex: Female

DRUGS (7)
  1. GLIBENCLAMIDE [Concomitant]
     Indication: DIABETES MELLITUS
     Dosage: UNK
  2. GLUCOPHAGE [Concomitant]
     Indication: DIABETES MELLITUS
     Dosage: UNK
  3. AMLODIPINE [Concomitant]
     Indication: HYPERTENSION
     Dosage: 5 MG, UNK
  4. ACETYLSALICYLIC ACID [Concomitant]
     Indication: ANTICOAGULANT THERAPY
     Dosage: 81 MG, UNK
  5. TYLENOL-500 [Concomitant]
     Indication: PAIN IN EXTREMITY
     Dosage: UNK, AS NEEDED
  6. TYGACIL [Suspect]
     Indication: STAPHYLOCOCCAL INFECTION
     Dosage: 100 MG, 1X/DAY
     Route: 042
     Dates: start: 20110909, end: 20110914
  7. TYGACIL [Suspect]
     Dosage: 50 MG, 2X/DAY
     Route: 042
     Dates: end: 20110914

REACTIONS (6)
  - BLOOD GLUCOSE INCREASED [None]
  - DECREASED APPETITE [None]
  - EATING DISORDER [None]
  - OROPHARYNGEAL PAIN [None]
  - OROPHARYNGEAL DISCOMFORT [None]
  - DYSPHAGIA [None]
